FAERS Safety Report 5669786-2 (Version None)
Quarter: 2008Q1

REPORT INFORMATION
  Report Type: 
  Country: None (occurrence: None)
  Receive Date: 20080317
  Receipt Date: 20080229
  Transmission Date: 20080703
  Serious: Yes (Disabling)
  Sender: FDA-Public Use
  Company Number: DE-ASTRAZENECA-2008SE01411

PATIENT
  Age: 753 Month
  Sex: Male

DRUGS (2)
  1. BLOPRESS [Suspect]
     Indication: HYPERTENSION
     Route: 048
     Dates: start: 19990101
  2. PANTOZOL [Concomitant]
     Route: 048

REACTIONS (1)
  - RENAL CYST [None]
